FAERS Safety Report 5718933-2 (Version None)
Quarter: 2008Q2

REPORT INFORMATION
  Report Type: 
  Country: None (occurrence: None)
  Receive Date: 20080425
  Receipt Date: 20080417
  Transmission Date: 20081010
  Serious: Yes (Other)
  Sender: FDA-Public Use
  Company Number: BR-PFIZER INC-2008035263

PATIENT
  Sex: Female
  Weight: 66.5 kg

DRUGS (3)
  1. CADUET [Suspect]
     Indication: HYPERTENSION
     Route: 048
     Dates: start: 20080101, end: 20080101
  2. CADUET [Suspect]
     Indication: BLOOD CHOLESTEROL INCREASED
  3. ALENDRONATE SODIUM [Concomitant]

REACTIONS (2)
  - CATARACT OPERATION [None]
  - OEDEMA PERIPHERAL [None]
